FAERS Safety Report 19448264 (Version 1)
Quarter: 2021Q2

REPORT INFORMATION
  Report Type: Spontaneous
  Country: FR (occurrence: FR)
  Receive Date: 20210622
  Receipt Date: 20210622
  Transmission Date: 20210717
  Serious: Yes (Other)
  Sender: FDA-Public Use
  Company Number: FR-MYLANLABS-2021M1036300

PATIENT
  Age: 43 Year
  Sex: Male
  Weight: 74 kg

DRUGS (4)
  1. LOVENOX [Concomitant]
     Active Substance: ENOXAPARIN SODIUM
     Indication: THROMBOSIS PROPHYLAXIS
     Dosage: 4000 INTERNATIONAL UNIT, QD
     Route: 058
     Dates: start: 20201002, end: 20201009
  2. CIPROFLOXACINE MYLAN [Suspect]
     Active Substance: CIPROFLOXACIN
     Indication: TESTICULAR TORSION
     Dosage: 500 MILLIGRAM, QD
     Route: 048
     Dates: start: 20201002, end: 20201009
  3. CIPROFLOXACINE ACCORD [Suspect]
     Active Substance: CIPROFLOXACIN HYDROCHLORIDE
     Indication: MYALGIA
  4. CIPROFLOXACINE ACCORD [Suspect]
     Active Substance: CIPROFLOXACIN HYDROCHLORIDE
     Indication: ORCHITIS
     Dosage: 1000 MILLIGRAM, QD
     Route: 048
     Dates: start: 20200930, end: 20201001

REACTIONS (5)
  - Burning sensation [Not Recovered/Not Resolved]
  - Headache [Not Recovered/Not Resolved]
  - Glare [Not Recovered/Not Resolved]
  - Deafness unilateral [Not Recovered/Not Resolved]
  - Myalgia [Not Recovered/Not Resolved]

NARRATIVE: CASE EVENT DATE: 20210101
